FAERS Safety Report 9031692 (Version 1)
Quarter: 2013Q1

REPORT INFORMATION
  Report Type: Spontaneous
  Country: FR (occurrence: FR)
  Receive Date: 20130124
  Receipt Date: 20130124
  Transmission Date: 20140127
  Serious: Yes (Disabling)
  Sender: FDA-Public Use
  Company Number: FR-PFIZER INC-2013021195

PATIENT
  Age: 61 Year
  Sex: Male
  Weight: 72 kg

DRUGS (7)
  1. SALAZOPYRINE [Suspect]
     Indication: RHEUMATOID ARTHRITIS
     Dosage: 2 G, 1X/DAY
     Route: 048
  2. METHOTREXATE [Suspect]
     Indication: RHEUMATOID ARTHRITIS
     Dosage: 12.5 MG, WEEKLY
     Route: 048
     Dates: start: 2002
  3. CORTICOSTEROID NOS [Concomitant]
  4. MOBIC [Concomitant]
     Dosage: 7.5 UNK, 1X/DAY
  5. OMEPRAZOLE [Concomitant]
     Dosage: 1 MG, 1X/DAY
  6. MONOALGIC [Concomitant]
     Dosage: 1 DF, 1X/DAY
  7. SERETIDE [Concomitant]
     Dosage: 1 DF, 1X/DAY

REACTIONS (2)
  - Visual acuity reduced [Unknown]
  - Neuropathy peripheral [Unknown]
